FAERS Safety Report 8390482-5 (Version None)
Quarter: 2012Q2

REPORT INFORMATION
  Report Type: 
  Country: None (occurrence: None)
  Receive Date: 20120529
  Receipt Date: 20120517
  Transmission Date: 20120825
  Serious: Yes (Hospitalization, Other)
  Sender: FDA-Public Use
  Company Number: US-SANOFI-AVENTIS-2012SA001185

PATIENT
  Sex: Male
  Weight: 83 kg

DRUGS (4)
  1. TRIAMTERENE AND HYDROCHLOROTHIAZIDE [Concomitant]
  2. RANITIDINE [Concomitant]
  3. WARFARIN SODIUM [Concomitant]
  4. MULTAQ [Suspect]
     Route: 048
     Dates: start: 20100910, end: 20110210

REACTIONS (7)
  - CHOLECYSTITIS ACUTE [None]
  - VOMITING [None]
  - DIZZINESS [None]
  - HEPATITIS [None]
  - NAUSEA [None]
  - ABDOMINAL PAIN [None]
  - PYREXIA [None]
